FAERS Safety Report 24421528 (Version 2)
Quarter: 2024Q4

REPORT INFORMATION
  Report Type: Spontaneous
  Country: US (occurrence: US)
  Receive Date: 20241010
  Receipt Date: 20241023
  Transmission Date: 20250115
  Serious: Yes (Life-Threatening, Hospitalization)
  Sender: TEVA
  Company Number: US-TEVA-VS-3251485

PATIENT
  Age: 59 Year
  Sex: Female

DRUGS (6)
  1. CARVEDILOL [Suspect]
     Active Substance: CARVEDILOL
     Indication: Intentional overdose
     Route: 065
  2. AMLODIPINE [Suspect]
     Active Substance: AMLODIPINE BESYLATE
     Indication: Intentional overdose
     Route: 065
  3. CLONIDINE [Suspect]
     Active Substance: CLONIDINE
     Indication: Intentional overdose
     Route: 065
  4. CARISOPRODOL [Suspect]
     Active Substance: CARISOPRODOL
     Indication: Intentional overdose
     Route: 065
  5. ALPRAZOLAM [Suspect]
     Active Substance: ALPRAZOLAM
     Indication: Intentional overdose
     Route: 065
  6. TRAMADOL [Suspect]
     Active Substance: TRAMADOL
     Indication: Intentional overdose
     Route: 065

REACTIONS (2)
  - Shock [Recovering/Resolving]
  - Intentional overdose [Unknown]
